FAERS Safety Report 4569492-1 (Version None)
Quarter: 2005Q1

REPORT INFORMATION
  Report Type: 
  Country: None (occurrence: None)
  Receive Date: 20050201
  Receipt Date: 20050119
  Transmission Date: 20050727
  Serious: No
  Sender: FDA-Public Use
  Company Number: A04200500047

PATIENT
  Sex: 0

DRUGS (1)
  1. QUENSYL - (HYDROXYCHLOROQUINE SULFATE) - TABLET - 200 MG [Suspect]
     Dosage: ORAL
     Route: 048

REACTIONS (1)
  - COLITIS ULCERATIVE [None]
